FAERS Safety Report 9887679 (Version 1)
Quarter: 2014Q1

REPORT INFORMATION
  Report Type: Spontaneous
  Country: US (occurrence: None)
  Receive Date: 20140207
  Receipt Date: 20140207
  Transmission Date: 20141002
  Serious: No
  Sender: FDA-Public Use
  Company Number: None

PATIENT
  Age: 35 Year
  Sex: Male
  Weight: 102.3 kg

DRUGS (1)
  1. PENICILLIN [Suspect]
     Indication: INFECTION

REACTIONS (1)
  - Angioedema [None]
